FAERS Safety Report 21742114 (Version 1)
Quarter: 2022Q4

REPORT INFORMATION
  Report Type: Spontaneous
  Country: CN (occurrence: CN)
  Receive Date: 20221216
  Receipt Date: 20221216
  Transmission Date: 20230113
  Serious: Yes (Death, Other)
  Sender: FDA-Public Use
  Company Number: CN-BoehringerIngelheim-2022-BI-208258

PATIENT
  Age: 47 Year
  Sex: Female

DRUGS (8)
  1. AFATINIB [Suspect]
     Active Substance: AFATINIB
     Indication: Non-small cell lung cancer
     Dates: start: 201909, end: 202106
  2. AFATINIB [Suspect]
     Active Substance: AFATINIB
     Indication: EGFR gene mutation
     Dates: start: 20210706
  3. ZOLEDRONIC ACID [Concomitant]
     Active Substance: ZOLEDRONIC ACID
     Indication: Product used for unknown indication
     Dates: end: 202001
  4. CARBOPLATIN [Concomitant]
     Active Substance: CARBOPLATIN
     Indication: Non-small cell lung cancer
     Dates: start: 201909, end: 202001
  5. CARBOPLATIN [Concomitant]
     Active Substance: CARBOPLATIN
     Indication: EGFR gene mutation
  6. PEMETREXED [Concomitant]
     Active Substance: PEMETREXED
     Indication: Non-small cell lung cancer
     Dates: start: 201909, end: 20210706
  7. PEMETREXED [Concomitant]
     Active Substance: PEMETREXED
     Indication: EGFR gene mutation
  8. OSIMERTINIB [Concomitant]
     Active Substance: OSIMERTINIB
     Indication: Product used for unknown indication
     Dates: end: 202001

REACTIONS (5)
  - Death [Fatal]
  - Malignant neoplasm progression [Not Recovered/Not Resolved]
  - Therapy partial responder [Not Recovered/Not Resolved]
  - Nuchal rigidity [Unknown]
  - Paronychia [Unknown]

NARRATIVE: CASE EVENT DATE: 20200301
